FAERS Safety Report 5065857-2 (Version None)
Quarter: 2006Q3

REPORT INFORMATION
  Report Type: 
  Country: None (occurrence: None)
  Receive Date: 20060726
  Receipt Date: 20060713
  Transmission Date: 20061208
  Serious: Yes (Other)
  Sender: FDA-Public Use
  Company Number: CHPA2006US06898

PATIENT
  Age: 24 Year
  Sex: Female
  Weight: 70.7 kg

DRUGS (3)
  1. VAGISTAT-1 [Suspect]
     Indication: VULVOVAGINAL MYCOTIC INFECTION
     Dosage: 300 MG, ONCE/SINGLE, VAGINAL
     Route: 067
     Dates: start: 20060711, end: 20060711
  2. LAMICTAL [Concomitant]
  3. XANAX [Concomitant]

REACTIONS (3)
  - GROIN PAIN [None]
  - HYPERSENSITIVITY [None]
  - VAGINAL SWELLING [None]
